FAERS Safety Report 4580806-9 (Version None)
Quarter: 2005Q1

REPORT INFORMATION
  Report Type: 
  Country: None (occurrence: None)
  Receive Date: 20050127
  Receipt Date: 20040818
  Transmission Date: 20050727
  Serious: No
  Sender: FDA-Public Use
  Company Number: USA040875834

PATIENT
  Age: 13 Year
  Sex: Female
  Weight: 73 kg

DRUGS (4)
  1. STRATTERA [Suspect]
     Indication: ATTENTION DEFICIT/HYPERACTIVITY DISORDER
     Dosage: 180 MG DAY
     Dates: start: 20040101
  2. PAXIL CR [Concomitant]
  3. TRILEPTAL [Concomitant]
  4. LORAZEPAM [Concomitant]

REACTIONS (1)
  - PRESCRIBED OVERDOSE [None]
